FAERS Safety Report 4671223-1 (Version None)
Quarter: 2005Q2

REPORT INFORMATION
  Report Type: 
  Country: None (occurrence: None)
  Receive Date: 20050523
  Receipt Date: 20050516
  Transmission Date: 20051028
  Serious: Yes (Other)
  Sender: FDA-Public Use
  Company Number: SU-2005-003043

PATIENT
  Age: 51 Year
  Sex: Female

DRUGS (7)
  1. OLMETEC [Suspect]
     Indication: HYPERTENSION
     Dosage: 20 MG QD PO
     Route: 048
     Dates: start: 20050117, end: 20050121
  2. VASCOR [Concomitant]
  3. VIDASTAT [Concomitant]
  4. DOXYCYCLINE [Concomitant]
  5. MOBIC [Concomitant]
  6. MYONAL [Concomitant]
  7. NEUROBION [Concomitant]

REACTIONS (3)
  - ASTHENIA [None]
  - DIARRHOEA [None]
  - HAEMATOCHEZIA [None]
